FAERS Safety Report 15606091 (Version 1)
Quarter: 2018Q4

REPORT INFORMATION
  Report Type: Report from Study
  Country: None (occurrence: US)
  Receive Date: 20181112
  Receipt Date: 20181112
  Transmission Date: 20190205
  Serious: Yes (Hospitalization, Other)
  Sender: FDA-Public Use
  Company Number: US-ABBVIE-18S-163-2549780-00

PATIENT
  Age: 34 Year
  Sex: Male
  Weight: 74.46 kg

DRUGS (3)
  1. NEUROTIN [Concomitant]
     Active Substance: GABAPENTIN
     Indication: BACK INJURY
  2. DEPAKOTE ER [Suspect]
     Active Substance: DIVALPROEX SODIUM
     Indication: SEIZURE
     Route: 048
     Dates: start: 1999
  3. NEUROTIN [Concomitant]
     Active Substance: GABAPENTIN
     Indication: NERVE INJURY

REACTIONS (12)
  - Fall [Recovered/Resolved]
  - Loss of consciousness [Recovered/Resolved]
  - Seizure [Recovered/Resolved]
  - Seizure [Recovered/Resolved]
  - Contusion [Recovered/Resolved]
  - Back injury [Not Recovered/Not Resolved]
  - Road traffic accident [Recovered/Resolved]
  - Arthralgia [Not Recovered/Not Resolved]
  - Procedural pain [Recovered/Resolved]
  - Nerve injury [Not Recovered/Not Resolved]
  - Eye contusion [Recovered/Resolved]
  - Back pain [Not Recovered/Not Resolved]

NARRATIVE: CASE EVENT DATE: 2013
